FAERS Safety Report 8927510 (Version 1)
Quarter: 2012Q4

REPORT INFORMATION
  Report Type: Report from Study
  Country: RU (occurrence: RU)
  Receive Date: 20121127
  Receipt Date: 20121127
  Transmission Date: 20130627
  Serious: Yes (Other)
  Sender: FDA-Public Use
  Company Number: RU-ROCHE-1160409

PATIENT
  Age: 56 Year
  Sex: Male
  Weight: 59 kg

DRUGS (8)
  1. BEVACIZUMAB [Suspect]
     Indication: COLON CANCER
     Route: 065
     Dates: start: 20120905, end: 20121119
  2. BEVACIZUMAB [Suspect]
     Indication: METASTASES TO LIVER
  3. 5-FLUOROURACIL [Concomitant]
     Indication: COLON CANCER
     Route: 040
     Dates: start: 20120905
  4. 5-FLUOROURACIL [Concomitant]
     Indication: METASTASES TO LIVER
     Route: 041
     Dates: end: 20121119
  5. LEUCOVORIN [Concomitant]
     Indication: COLON CANCER
     Route: 042
     Dates: start: 20120905, end: 20121119
  6. LEUCOVORIN [Concomitant]
     Indication: METASTASES TO LIVER
  7. OXALIPLATIN [Concomitant]
     Indication: COLON CANCER
     Route: 042
     Dates: start: 20120905, end: 20121119
  8. OXALIPLATIN [Concomitant]
     Indication: METASTASES TO LIVER

REACTIONS (3)
  - Disease progression [Not Recovered/Not Resolved]
  - Hepatic failure [Not Recovered/Not Resolved]
  - Ascites [Not Recovered/Not Resolved]
